FAERS Safety Report 8757563 (Version 1)
Quarter: 2012Q4

REPORT INFORMATION
  Report Type: 
  Country: DE (occurrence: DE)
  Receive Date: 20120828
  Receipt Date: 20120828
  Transmission Date: 20130627
  Serious: Yes (Hospitalization)
  Sender: FDA-Public Use
  Company Number: DE-PFIZER INC-2012205934

PATIENT
  Sex: Female
  Weight: 71 kg

DRUGS (4)
  1. GENOTROPIN [Suspect]
     Dosage: 0.2 mg, 7-WK
     Route: 058
     Dates: start: 20100623
  2. L-THYROXIS [Concomitant]
     Indication: BLOOD THYROID STIMULATING HORMONE DECREASED
     Dosage: UNK
     Dates: start: 2010
  3. L-THYROXIS [Concomitant]
     Indication: PRIMARY HYPOTHYROIDISM
  4. AMLLODIPIN [Concomitant]
     Indication: HYPERTENSION
     Dosage: UNK
     Dates: start: 2010

REACTIONS (1)
  - Pain [Unknown]
